FAERS Safety Report 5367424-X (Version None)
Quarter: 2007Q2

REPORT INFORMATION
  Report Type: 
  Country: None (occurrence: None)
  Receive Date: 20070622
  Receipt Date: 20061102
  Transmission Date: 20071010
  Serious: No
  Sender: FDA-Public Use
  Company Number: US-ASTRAZENECA-2006UW21341

PATIENT
  Age: 85 Year
  Sex: Male
  Weight: 83.5 kg

DRUGS (5)
  1. PULMICORT RESPULES [Suspect]
     Indication: CHRONIC OBSTRUCTIVE PULMONARY DISEASE
     Route: 055
     Dates: start: 20061001
  2. ALBUTEROL [Concomitant]
  3. TOPROL-XL [Concomitant]
  4. IMDUR [Concomitant]
  5. LIPITOR [Concomitant]

REACTIONS (2)
  - COUGH [None]
  - THROAT IRRITATION [None]
